FAERS Safety Report 23392012 (Version 2)
Quarter: 2024Q1

REPORT INFORMATION
  Report Type: Spontaneous
  Country: US (occurrence: US)
  Receive Date: 20240111
  Receipt Date: 20240206
  Transmission Date: 20240410
  Serious: No
  Sender: FDA-Public Use
  Company Number: US-SA-SAC20240108001161

PATIENT
  Age: 13 Year
  Sex: Female
  Weight: 72.574 kg

DRUGS (4)
  1. DUPIXENT [Suspect]
     Active Substance: DUPILUMAB
     Indication: Dermatitis atopic
     Dosage: 300 MG, QOW
     Route: 058
     Dates: start: 20231206, end: 20240110
  2. BETAMETHASONE [Concomitant]
     Active Substance: BETAMETHASONE\BETAMETHASONE DIPROPIONATE
     Dosage: 0.05 %
     Route: 061
     Dates: start: 20230719
  3. MUPIROCIN [Concomitant]
     Active Substance: MUPIROCIN
     Route: 061
  4. PREDNISONE [Concomitant]
     Active Substance: PREDNISONE
     Dosage: 10MG
     Route: 048

REACTIONS (1)
  - Urticaria [Unknown]

NARRATIVE: CASE EVENT DATE: 20231228
